FAERS Safety Report 15961314 (Version 2)
Quarter: 2019Q1

REPORT INFORMATION
  Report Type: Report from Study
  Country: ZA (occurrence: ZA)
  Receive Date: 20190214
  Receipt Date: 20190311
  Transmission Date: 20190417
  Serious: Yes (Death, Hospitalization)
  Sender: FDA-Public Use
  Company Number: ZA-SA-2019SA035221

PATIENT
  Age: 69 Year
  Sex: Male

DRUGS (4)
  1. ASPAVOR [Concomitant]
     Active Substance: ATORVASTATIN
     Dosage: 10 MG, QD (BEFORE SUPPER)
     Route: 065
     Dates: start: 20180101
  2. INSULIN GLULISINE [Suspect]
     Active Substance: INSULIN GLULISINE
     Dosage: BEFORE SUPPER 12 U AND 6 U, BEFORE BREAKFAST 12 U; QID
     Route: 065
     Dates: start: 20180920
  3. OPTISULIN (INSULIN GLARGINE) [Suspect]
     Active Substance: INSULIN GLARGINE
     Dosage: 12 U, HS
     Route: 065
     Dates: start: 20180920
  4. CARVETREND [Concomitant]
     Active Substance: CARVEDILOL
     Dosage: 12.5 MG, QD (BEFORE SUPPER)
     Route: 065
     Dates: start: 20180101

REACTIONS (3)
  - Death [Fatal]
  - Abdominal distension [Not Recovered/Not Resolved]
  - Blood glucose abnormal [Not Recovered/Not Resolved]

NARRATIVE: CASE EVENT DATE: 20190206
